FAERS Safety Report 18163146 (Version 1)
Quarter: 2020Q3

REPORT INFORMATION
  Report Type: Spontaneous
  Country: US (occurrence: US)
  Receive Date: 20200818
  Receipt Date: 20200818
  Transmission Date: 20201103
  Serious: No
  Sender: FDA-Public Use
  Company Number: None

PATIENT
  Age: 64 Year
  Sex: Female
  Weight: 85.05 kg

DRUGS (18)
  1. ACETAMINOPHEN. [Concomitant]
     Active Substance: ACETAMINOPHEN
  2. ALBUTEROL. [Concomitant]
     Active Substance: ALBUTEROL
  3. FLUTICASONE. [Concomitant]
     Active Substance: FLUTICASONE
  4. MECLIZINE [Concomitant]
     Active Substance: MECLIZINE HYDROCHLORIDE
  5. ACYCLOVIR. [Concomitant]
     Active Substance: ACYCLOVIR
  6. ASPIRIN. [Concomitant]
     Active Substance: ASPIRIN
  7. FLUOXETINE [Concomitant]
     Active Substance: FLUOXETINE HYDROCHLORIDE
  8. GABAPENTIN. [Concomitant]
     Active Substance: GABAPENTIN
  9. FUROSEMIDE. [Concomitant]
     Active Substance: FUROSEMIDE
  10. METHADONE [Concomitant]
     Active Substance: METHADONE HYDROCHLORIDE
  11. CAPECITABINE. [Suspect]
     Active Substance: CAPECITABINE
     Indication: BREAST CANCER
     Route: 048
     Dates: start: 20200625
  12. LORATADINE. [Concomitant]
     Active Substance: LORATADINE
  13. STOOL SOFTENER (DOCUSATE) [Concomitant]
     Active Substance: DOCUSATE
  14. VITAMIN D [Concomitant]
     Active Substance: VITAMIN D NOS
  15. EPIPEN [Concomitant]
     Active Substance: EPINEPHRINE
  16. VICKS NYQUIL [Concomitant]
     Active Substance: ACETAMINOPHEN\DEXTROMETHORPHAN HYDROBROMIDE\DOXYLAMINE SUCCINATE
  17. OXYCODONE [Concomitant]
     Active Substance: OXYCODONE
  18. LORAZEPAM. [Concomitant]
     Active Substance: LORAZEPAM

REACTIONS (4)
  - Neuropathy peripheral [None]
  - Wheezing [None]
  - Aphasia [None]
  - Memory impairment [None]

NARRATIVE: CASE EVENT DATE: 20200818
